FAERS Safety Report 19169832 (Version 2)
Quarter: 2021Q2

REPORT INFORMATION
  Report Type: Spontaneous
  Country: US (occurrence: US)
  Receive Date: 20210422
  Receipt Date: 20210615
  Transmission Date: 20210717
  Serious: Yes (Hospitalization, Other)
  Sender: FDA-Public Use
  Company Number: US-B.I. PHARMACEUTICALS,INC./RIDGEFIELD-2021-BI-098148

PATIENT
  Age: 83 Year
  Sex: Male

DRUGS (1)
  1. PRADAXA [Suspect]
     Active Substance: DABIGATRAN ETEXILATE MESYLATE
     Indication: PRODUCT USED FOR UNKNOWN INDICATION
     Dosage: 150MG Q 12 HOURS
     Route: 065

REACTIONS (8)
  - Malaise [Unknown]
  - Cardiac disorder [Unknown]
  - Obstruction gastric [Unknown]
  - Haematuria [Unknown]
  - Hearing aid user [Recovered/Resolved]
  - Gastric haemorrhage [Unknown]
  - Penile haemorrhage [Not Recovered/Not Resolved]
  - Prostate cancer [Unknown]

NARRATIVE: CASE EVENT DATE: 2018
